FAERS Safety Report 17782707 (Version 2)
Quarter: 2020Q3

REPORT INFORMATION
  Report Type: Report from Study
  Country: US (occurrence: US)
  Receive Date: 20200513
  Receipt Date: 20200701
  Transmission Date: 20201102
  Serious: No
  Sender: FDA-Public Use
  Company Number: NVSC2020US130385

PATIENT
  Sex: Female

DRUGS (1)
  1. COSENTYX [Suspect]
     Active Substance: SECUKINUMAB
     Indication: PSORIASIS
     Dosage: 300 MG, (ONCE WEEKLY FOR 5 WEEKS (LOADING),THEN ONCE EVERY 4 WEEKS )MAINTENANCE
     Route: 058
     Dates: start: 20200324

REACTIONS (3)
  - Injection site extravasation [Unknown]
  - Injection site pain [Unknown]
  - Somnolence [Unknown]
